FAERS Safety Report 9878837 (Version 1)
Quarter: 2014Q1

REPORT INFORMATION
  Report Type: Spontaneous
  Country: DE (occurrence: DE)
  Receive Date: 20140206
  Receipt Date: 20140206
  Transmission Date: 20141002
  Serious: Yes (Other)
  Sender: FDA-Public Use
  Company Number: DE-GLAXOSMITHKLINE-D0082664A

PATIENT
  Sex: Female
  Weight: 93 kg

DRUGS (18)
  1. VOTRIENT [Suspect]
     Indication: METASTATIC RENAL CELL CARCINOMA
     Route: 048
     Dates: start: 20121217
  2. TEMSIROLIMUS [Concomitant]
     Indication: METASTATIC RENAL CELL CARCINOMA
     Dosage: 25MG WEEKLY
     Dates: start: 20100602, end: 20121210
  3. ATACAND [Concomitant]
     Dosage: 16MG IN THE MORNING
     Route: 048
  4. BISOPROLOL [Concomitant]
     Dosage: 10MG IN THE MORNING
     Route: 065
  5. AMLODIPIN [Concomitant]
     Dosage: 10MG IN THE MORNING
     Route: 065
  6. NEPRESOL [Concomitant]
     Dosage: 25MG TWICE PER DAY
     Route: 065
  7. ASS [Concomitant]
     Dosage: 100MG IN THE MORNING
     Route: 048
  8. AQUAPHOR [Concomitant]
     Dosage: 40MG IN THE MORNING
     Route: 065
  9. PREDNISOLON [Concomitant]
     Dosage: 1.25MG IN THE MORNING
     Route: 065
  10. SIMVASTATIN [Concomitant]
     Dosage: 40MG PER DAY
     Route: 048
  11. PANTOPRAZOL [Concomitant]
     Dosage: 40MG PER DAY
     Route: 065
  12. XGEVA [Concomitant]
     Route: 065
  13. VIANI [Concomitant]
     Dosage: 1PUFF TWICE PER DAY
     Route: 055
  14. SPIRIVA [Concomitant]
     Dosage: 18MCG IN THE MORNING
     Route: 065
  15. MIRTAZAPIN [Concomitant]
     Dosage: 15MG PER DAY
     Route: 065
  16. IDEOS [Concomitant]
     Route: 048
  17. NOVALGIN [Concomitant]
     Dosage: 500MG AS REQUIRED
     Route: 048
  18. ARANESP [Concomitant]
     Dosage: 500MCG AS REQUIRED
     Route: 065

REACTIONS (3)
  - Muscle spasms [Recovered/Resolved]
  - Pain [Recovered/Resolved]
  - Immobile [Recovered/Resolved]
